FAERS Safety Report 4347994-0 (Version None)
Quarter: 2004Q1

REPORT INFORMATION
  Report Type: 
  Country: None (occurrence: None)
  Receive Date: 20040325
  Receipt Date: 20040105
  Transmission Date: 20041129
  Serious: No
  Sender: FDA-Public Use
  Company Number: USA030330794

PATIENT
  Age: 76 Year
  Sex: Female

DRUGS (2)
  1. FORTEO [Suspect]
     Indication: OSTEOPOROSIS
     Dosage: 20 UG/DAY
     Dates: start: 20030303
  2. FOSAMAX [Concomitant]

REACTIONS (4)
  - ACCIDENTAL NEEDLE STICK [None]
  - HOT FLUSH [None]
  - HYPERHIDROSIS [None]
  - PIGMENTED NAEVUS [None]
